FAERS Safety Report 4499251-X (Version None)
Quarter: 2004Q4

REPORT INFORMATION
  Report Type: 
  Country: None (occurrence: None)
  Receive Date: 20041111
  Receipt Date: 20041106
  Transmission Date: 20050328
  Serious: Yes (Other)
  Sender: FDA-Public Use
  Company Number: CA-BRISTOL-MYERS SQUIBB COMPANY-12758769

PATIENT
  Age: 87 Year
  Sex: Female

DRUGS (1)
  1. TEQUIN [Suspect]
     Indication: BACTERAEMIA
     Route: 042
     Dates: start: 20041103, end: 20041103

REACTIONS (1)
  - HYPOGLYCAEMIC COMA [None]
